FAERS Safety Report 23065892 (Version 1)
Quarter: 2023Q4

REPORT INFORMATION
  Report Type: Spontaneous
  Country: US (occurrence: GB)
  Receive Date: 20231014
  Receipt Date: 20231014
  Transmission Date: 20240109
  Serious: Yes (Life-Threatening, Hospitalization, Other)
  Sender: FDA-Public Use
  Company Number: US-TORRENT-00012897

PATIENT
  Age: 77 Year
  Sex: Male

DRUGS (2)
  1. CLOPIDOGREL [Suspect]
     Active Substance: CLOPIDOGREL BISULFATE
     Indication: Cardiac operation
     Dosage: UNKNOWN
     Route: 065
  2. WARFARIN [Suspect]
     Active Substance: WARFARIN
     Indication: Cardiac operation
     Dosage: UNKNOWN
     Route: 065

REACTIONS (1)
  - Acute myocardial infarction [Recovering/Resolving]
